FAERS Safety Report 8611753 (Version 3)
Quarter: 2013Q1

REPORT INFORMATION
  Report Type: Spontaneous
  Country: JP (occurrence: JP)
  Receive Date: 20120613
  Receipt Date: 20130328
  Transmission Date: 20140127
  Serious: Yes (Other)
  Sender: FDA-Public Use
  Company Number: JP-B.I. PHARMACEUTICALS,INC./RIDGEFIELD-2012-BP-13175NB

PATIENT
  Age: 72 Year
  Sex: Male

DRUGS (2)
  1. PRAZAXA [Suspect]
     Indication: ATRIAL FIBRILLATION
     Dosage: 220 MG
     Route: 048
  2. ALTEPLASE [Suspect]
     Indication: EMBOLIC STROKE
     Route: 042

REACTIONS (2)
  - Embolic stroke [Unknown]
  - Haemorrhage intracranial [Unknown]
